FAERS Safety Report 5673739-8 (Version None)
Quarter: 2008Q1

REPORT INFORMATION
  Report Type: 
  Country: None (occurrence: None)
  Receive Date: 20080319
  Receipt Date: 20080312
  Transmission Date: 20080703
  Serious: Yes (Hospitalization, Other)
  Sender: FDA-Public Use
  Company Number: US-MERCK-0612USA04018

PATIENT
  Age: 73 Year
  Sex: Female
  Weight: 57 kg

DRUGS (2)
  1. FOSAMAX [Suspect]
     Indication: OSTEOPOROSIS
     Route: 048
     Dates: start: 19980801, end: 20000901
  2. FOSAMAX [Suspect]
     Route: 048
     Dates: start: 20010101, end: 20031001

REACTIONS (17)
  - ADRENAL INSUFFICIENCY [None]
  - BRADYCARDIA [None]
  - BRONCHITIS [None]
  - CHRONIC OBSTRUCTIVE PULMONARY DISEASE [None]
  - CHRONIC RESPIRATORY DISEASE [None]
  - CLOSTRIDIUM DIFFICILE COLITIS [None]
  - DEHYDRATION [None]
  - DIARRHOEA [None]
  - NEUROPATHY PERIPHERAL [None]
  - OSTEOMYELITIS [None]
  - OSTEONECROSIS [None]
  - PERIPHERAL VASCULAR DISORDER [None]
  - PNEUMONIA [None]
  - PULMONARY CONGESTION [None]
  - SKIN LESION [None]
  - SQUAMOUS CELL CARCINOMA [None]
  - TRIGGER FINGER [None]
